FAERS Safety Report 24296590 (Version 2)
Quarter: 2024Q4

REPORT INFORMATION
  Report Type: Spontaneous
  Country: US (occurrence: US)
  Receive Date: 20240909
  Receipt Date: 20241118
  Transmission Date: 20250114
  Serious: Yes (Other)
  Sender: SPECGX
  Company Number: US-SPECGX-T202401809

PATIENT
  Age: 21 Year
  Sex: Male

DRUGS (5)
  1. POSACONAZOLE [Suspect]
     Active Substance: POSACONAZOLE
     Indication: Fungal infection
     Dosage: UNK
     Route: 065
  2. PREDNISOLONE ACETATE [Suspect]
     Active Substance: PREDNISOLONE ACETATE
     Indication: Iritis
     Dosage: UNK
     Route: 061
  3. VORICONAZOLE [Suspect]
     Active Substance: VORICONAZOLE
     Indication: Antifungal treatment
     Dosage: UNK
     Route: 048
  4. VORICONAZOLE [Suspect]
     Active Substance: VORICONAZOLE
     Dosage: 100 MG IN 0.1 ML INJECTION
  5. AMPHOTERICIN B [Concomitant]
     Active Substance: AMPHOTERICIN B
     Indication: Fungal infection
     Dosage: UNK
     Route: 065

REACTIONS (7)
  - Cataract [Unknown]
  - Iris adhesions [Unknown]
  - Eye excision [Unknown]
  - Iris neovascularisation [Unknown]
  - Corectopia [Unknown]
  - Eye pain [Unknown]
  - Product use in unapproved indication [Unknown]
